FAERS Safety Report 13091546 (Version 7)
Quarter: 2017Q3

REPORT INFORMATION
  Report Type: Report from Study
  Country: RO (occurrence: RO)
  Receive Date: 20170106
  Receipt Date: 20170705
  Transmission Date: 20171127
  Serious: Yes (Other)
  Sender: FDA-Public Use
  Company Number: PHHY2016RO181949

PATIENT
  Age: 18 Year
  Sex: Female

DRUGS (4)
  1. DOSTINEX [Concomitant]
     Active Substance: CABERGOLINE
     Indication: PITUITARY-DEPENDENT CUSHING^S SYNDROME
     Dosage: 0.3 MG, 3 TIMES PER WEEK
     Route: 065
     Dates: start: 20160222, end: 20160529
  2. DOSTINEX [Concomitant]
     Active Substance: CABERGOLINE
     Dosage: 0.5 MG, BID
     Route: 065
     Dates: start: 20160602
  3. SIGNIFOR [Suspect]
     Active Substance: PASIREOTIDE
     Indication: PITUITARY-DEPENDENT CUSHING^S SYNDROME
     Dosage: 0.6 MG, BID
     Route: 058
     Dates: start: 20160530, end: 20160601
  4. SIGNIFOR [Suspect]
     Active Substance: PASIREOTIDE
     Dosage: 1.2 MG, BID
     Route: 058
     Dates: start: 20160602, end: 20161023

REACTIONS (10)
  - Hyperphagia [Unknown]
  - Diabetes mellitus [Recovered/Resolved]
  - Drug ineffective [Recovered/Resolved]
  - Dry skin [Unknown]
  - Drug ineffective [Unknown]
  - Pruritus [Unknown]
  - Vision blurred [Unknown]
  - Dry mouth [Unknown]
  - Fatigue [Unknown]
  - Hypercholesterolaemia [Recovered/Resolved]

NARRATIVE: CASE EVENT DATE: 20160530
